FAERS Safety Report 8662873 (Version 2)
Quarter: 2012Q4

REPORT INFORMATION
  Report Type: 
  Country: DK (occurrence: CA)
  Receive Date: 20120712
  Receipt Date: 20120917
  Transmission Date: 20130627
  Serious: Yes (Life-Threatening)
  Sender: FDA-Public Use
  Company Number: CA-FRI-1000036966

PATIENT
  Age: 34 Year
  Sex: Male
  Weight: 93 kg

DRUGS (4)
  1. CELEXA [Suspect]
     Indication: DEPRESSION
     Dosage: 30 mg
     Route: 048
     Dates: start: 20100830
  2. CELEXA [Suspect]
     Indication: ANXIETY
  3. RISPERDAL [Concomitant]
     Indication: PSYCHOTIC DISORDER
     Dosage: 1.5 mg
     Route: 048
  4. WARFARIN [Concomitant]
     Indication: DEEP VEIN THROMBOSIS
     Dosage: 10 mg at HS
     Route: 048

REACTIONS (1)
  - Deep vein thrombosis [Recovering/Resolving]
